FAERS Safety Report 14022355 (Version 1)
Quarter: 2017Q3

REPORT INFORMATION
  Report Type: Spontaneous
  Country: US (occurrence: US)
  Receive Date: 20170928
  Receipt Date: 20170928
  Transmission Date: 20171128
  Serious: Yes (Other)
  Sender: FDA-Public Use
  Company Number: None

PATIENT

DRUGS (1)
  1. BOTOX [Suspect]
     Active Substance: ONABOTULINUMTOXINA
     Indication: ENDOSCOPY
     Dates: start: 20170927, end: 20170927

REACTIONS (1)
  - Product label issue [None]

NARRATIVE: CASE EVENT DATE: 20170927
